FAERS Safety Report 8317735-0 (Version None)
Quarter: 2012Q2

REPORT INFORMATION
  Report Type: 
  Country: None (occurrence: None)
  Receive Date: 20120427
  Receipt Date: 20120420
  Transmission Date: 20120825
  Serious: Yes (Other)
  Sender: FDA-Public Use
  Company Number: US-ASTRAZENECA-2012SE26351

PATIENT
  Age: 71 Year
  Sex: Male

DRUGS (6)
  1. PLAVIX [Suspect]
  2. BRILINTA [Suspect]
     Route: 048
  3. PREDNISONE [Suspect]
  4. BENADRYL [Concomitant]
  5. HYDROXZYINE [Concomitant]
  6. LIPITOR [Suspect]

REACTIONS (6)
  - URTICARIA [None]
  - MUSCULAR WEAKNESS [None]
  - FACE OEDEMA [None]
  - BLOOD GLUCOSE INCREASED [None]
  - PHARYNGEAL OEDEMA [None]
  - MYALGIA [None]
